FAERS Safety Report 5615290-7 (Version None)
Quarter: 2008Q1

REPORT INFORMATION
  Report Type: 
  Country: None (occurrence: None)
  Receive Date: 20080206
  Receipt Date: 20080201
  Transmission Date: 20080703
  Serious: Yes (Death, Life-Threatening, Other)
  Sender: FDA-Public Use
  Company Number: PHFR2008GB00753

PATIENT
  Age: 45 Year
  Sex: Female

DRUGS (6)
  1. ZOMETA [Suspect]
     Indication: BONE NEOPLASM MALIGNANT
     Dates: start: 20040801, end: 20050801
  2. CLOZARIL [Concomitant]
     Indication: SCHIZOPHRENIA
     Route: 048
     Dates: start: 19910101, end: 19950401
  3. ZAPONEX [Concomitant]
     Indication: SCHIZOPHRENIA
     Dates: start: 20050401, end: 20050801
  4. ANTIPSYCHOTICS [Concomitant]
     Indication: PSYCHOTIC DISORDER
     Route: 065
  5. HORMONES AND RELATED AGENTS [Concomitant]
  6. CLOPIXOL [Concomitant]

REACTIONS (9)
  - BREAST CANCER [None]
  - DEATH [None]
  - DENTAL OPERATION [None]
  - INCONTINENCE [None]
  - INFECTION [None]
  - OSTEONECROSIS [None]
  - PSYCHOTIC DISORDER [None]
  - SUICIDE ATTEMPT [None]
  - TOOTH EXTRACTION [None]
